FAERS Safety Report 8573085-9 (Version None)
Quarter: 2012Q2

REPORT INFORMATION
  Report Type: 
  Country: None (occurrence: None)
  Receive Date: 20120418
  Receipt Date: 20110125
  Transmission Date: 20120825
  Serious: Yes (Other)
  Sender: FDA-Public Use
  Company Number: PHHY2011US05867

PATIENT
  Age: 63 Year
  Sex: Female

DRUGS (8)
  1. METFFORMIN HYDROCHLORIDE [Concomitant]
  2. DIOVAN HCT [Suspect]
     Indication: HYPERTENSION
     Dosage: 1 DF, QD
     Dates: start: 20080125
  3. PREMARIN [Concomitant]
  4. ALLEGRA [Concomitant]
  5. METHOTREXATE SODIUM [Concomitant]
  6. FOLIC ACID [Concomitant]
  7. CALCIUM W/COLECALCIFEROL (CALCIUM, COLECALCIFEROL) [Concomitant]
  8. CENTRUM SILVER (ASCORBIC ACID, CALCIUIM, MINERALS NOS, RETINOL, TOCOPH [Concomitant]

REACTIONS (1)
  - DIABETES MELLITUS [None]
